FAERS Safety Report 22981922 (Version 2)
Quarter: 2023Q4

REPORT INFORMATION
  Report Type: Spontaneous
  Country: BG (occurrence: BG)
  Receive Date: 20230926
  Receipt Date: 20231103
  Transmission Date: 20240110
  Serious: Yes (Other)
  Sender: FDA-Public Use
  Company Number: BG-STRIDES ARCOLAB LIMITED-2023SP014726

PATIENT
  Age: 46 Year
  Sex: Male

DRUGS (5)
  1. IBUPROFEN [Suspect]
     Active Substance: IBUPROFEN
     Indication: Nasopharyngitis
     Dosage: 200 MILLIGRAM
     Route: 048
  2. LORATADINE [Suspect]
     Active Substance: LORATADINE
     Indication: Rhinitis allergic
     Dosage: 10 MILLIGRAM, QD, ONCE DAILY FOR OVER 5-10 YEARS
     Route: 048
  3. ASPIRIN [Suspect]
     Active Substance: ASPIRIN
     Indication: COVID-19
     Dosage: 100 MILLIGRAM, FOR 2-3 WEEKS
     Route: 048
  4. CETIRIZINE HYDROCHLORIDE [Suspect]
     Active Substance: CETIRIZINE HYDROCHLORIDE
     Indication: Rhinitis allergic
     Dosage: UNK
     Route: 048
  5. ASCORBIC ACID\ASPIRIN [Suspect]
     Active Substance: ASCORBIC ACID\ASPIRIN
     Indication: COVID-19
     Dosage: UNK, FOR 10 -12 DAYS
     Route: 048

REACTIONS (1)
  - Fixed eruption [Recovered/Resolved]
